FAERS Safety Report 4617621-3 (Version None)
Quarter: 2005Q1

REPORT INFORMATION
  Report Type: 
  Country: None (occurrence: None)
  Receive Date: 20050324
  Receipt Date: 20050301
  Transmission Date: 20050727
  Serious: Yes (Hospitalization, Other)
  Sender: FDA-Public Use
  Company Number: US-BRISTOL-MYERS SQUIBB COMPANY-12882759

PATIENT
  Age: 46 Year
  Sex: Male
  Weight: 50 kg

DRUGS (4)
  1. CETUXIMAB [Suspect]
     Indication: GASTRIC CANCER
     Dosage: 1ST INFUSION ADMINISTERED 08-FEB-2005 (656 MG=400 MG/M2). 28-FEB-2005(WEEK 4) CETUXIMAB HELD.
     Dates: start: 20050222, end: 20050222
  2. CARBOPLATIN [Suspect]
     Indication: GASTRIC CANCER
     Dosage: 1ST INFUSION ADMINISTERED 08-FEB-2005 (AU2=255 MG). 28-FEB-2005 (WEEK 4) CARBOPLATIN HELD.
     Dates: start: 20050222, end: 20050222
  3. PACLITAXEL [Suspect]
     Indication: GASTRIC CANCER
     Dosage: 1ST INFUSION ADMINISTERED 08-FEB-2005 (50 MG/M2= 81.5 MG). 28-FEB-2005 (WEEK 4) PACLITAXEL HELD.
     Dates: start: 20050222, end: 20050222
  4. RADIATION THERAPY [Suspect]
     Indication: GASTRIC CANCER
     Dosage: DAILY RADIATION THERAPY (HELD 28-FEB-2005).

REACTIONS (4)
  - DEHYDRATION [None]
  - DIARRHOEA [None]
  - NAUSEA [None]
  - VOMITING [None]
